FAERS Safety Report 8779593 (Version 2)
Quarter: 2013Q3

REPORT INFORMATION
  Report Type: Report from Study
  Country: JP (occurrence: JP)
  Receive Date: 20120912
  Receipt Date: 20130828
  Transmission Date: 20140515
  Serious: Yes (Death)
  Sender: FDA-Public Use
  Company Number: JP-AMGEN-JPNSP2012056907

PATIENT
  Age: 61 Year
  Sex: Female
  Weight: 62 kg

DRUGS (13)
  1. ROMIPLOSTIM - KHK [Suspect]
     Indication: IMMUNE THROMBOCYTOPENIC PURPURA
     Dosage: 1 MUG/KG, QWK
     Route: 058
     Dates: start: 20111215, end: 20120105
  2. ROMIPLOSTIM - KHK [Suspect]
     Dosage: 2 MUG/KG, UNK
     Route: 058
     Dates: start: 20120112, end: 20120126
  3. ROMIPLOSTIM - KHK [Suspect]
     Dosage: 3 MUG/KG, QD
     Route: 058
     Dates: start: 20120202, end: 20120202
  4. ROMIPLOSTIM - KHK [Suspect]
     Dosage: 4 MUG/KG, UNK
     Route: 058
     Dates: start: 20120209, end: 20120223
  5. ROMIPLOSTIM - KHK [Suspect]
     Dosage: 5 MUG/KG, QWK
     Route: 058
     Dates: start: 20120301, end: 20120607
  6. ROMIPLOSTIM - KHK [Suspect]
     Dosage: 6 MUG/KG, QWK
     Route: 058
     Dates: start: 20120614, end: 20120621
  7. ROMIPLOSTIM - KHK [Suspect]
     Dosage: 6 MUG/KG, QWK
     Route: 058
     Dates: start: 20120712, end: 20120719
  8. PREDONINE [Concomitant]
     Indication: IMMUNE THROMBOCYTOPENIC PURPURA
     Dosage: 7.5 MG, UNK
     Route: 048
     Dates: start: 20111121, end: 20120724
  9. PREDONINE [Concomitant]
     Dosage: 7.5 MG, UNK
     Route: 048
     Dates: start: 20120706, end: 20120724
  10. URSO [Concomitant]
     Indication: CHRONIC HEPATITIS
     Dosage: 300 MG, UNK
     Route: 048
  11. FAMOTIDINE [Concomitant]
     Indication: GASTRITIS
     Dosage: 20 MG, UNK
     Route: 048
  12. RISPERDAL [Concomitant]
     Indication: SCHIZOPHRENIA
     Dosage: 3 MG, UNK
     Route: 048
  13. ZYLORIC [Concomitant]
     Indication: HYPERURICAEMIA
     Dosage: 50 MG, UNK
     Route: 048

REACTIONS (1)
  - Brain stem infarction [Fatal]
